FAERS Safety Report 20131911 (Version 1)
Quarter: 2021Q4

REPORT INFORMATION
  Report Type: Report from Study
  Country: BR (occurrence: BR)
  Receive Date: 20211130
  Receipt Date: 20211130
  Transmission Date: 20220303
  Serious: Yes (Other)
  Sender: FDA-Public Use
  Company Number: BR-BIOGEN-2021BI01072557

PATIENT
  Sex: Female

DRUGS (2)
  1. TECFIDERA [Suspect]
     Active Substance: DIMETHYL FUMARATE
     Indication: Multiple sclerosis
     Route: 048
     Dates: start: 20210331
  2. AMATO (TOPIRAMATE) [Concomitant]
     Indication: Headache
     Route: 065

REACTIONS (5)
  - Noninfective encephalitis [Unknown]
  - Multiple sclerosis relapse [Unknown]
  - Fall [Recovered/Resolved]
  - Head injury [Unknown]
  - Contusion [Unknown]

NARRATIVE: CASE EVENT DATE: 20210101
